FAERS Safety Report 8181245-4 (Version None)
Quarter: 2012Q1

REPORT INFORMATION
  Report Type: 
  Country: None (occurrence: None)
  Receive Date: 20120302
  Receipt Date: 20120225
  Transmission Date: 20120608
  Serious: Yes (Hospitalization)
  Sender: FDA-Public Use
  Company Number: US-US-EMD SERONO, INC.-7077618

PATIENT
  Sex: Female

DRUGS (2)
  1. REBIF [Suspect]
     Indication: MULTIPLE SCLEROSIS
     Route: 058
     Dates: start: 20030819, end: 20120113
  2. REBIF [Suspect]
     Route: 058
     Dates: start: 20120206

REACTIONS (12)
  - UROSEPSIS [None]
  - URINARY TRACT INFECTION [None]
  - SENSATION OF HEAVINESS [None]
  - ELECTROCARDIOGRAM ABNORMAL [None]
  - MUSCULAR WEAKNESS [None]
  - ANGER [None]
  - NEPHROLITHIASIS [None]
  - HYPOTENSION [None]
  - BLOOD POTASSIUM DECREASED [None]
  - MULTIPLE SCLEROSIS RELAPSE [None]
  - MUSCULOSKELETAL STIFFNESS [None]
  - DEPRESSED MOOD [None]
